FAERS Safety Report 9077217 (Version 1)
Quarter: 2013Q1

REPORT INFORMATION
  Report Type: Spontaneous
  Country: US (occurrence: US)
  Receive Date: 20130130
  Receipt Date: 20130130
  Transmission Date: 20140127
  Serious: Yes (Other)
  Sender: FDA-Public Use
  Company Number: US-BAYER-2013-010754

PATIENT
  Sex: Female

DRUGS (1)
  1. OCELLA [Suspect]
     Dosage: UNK
     Dates: start: 2009, end: 2011

REACTIONS (3)
  - Gallbladder disorder [None]
  - Injury [None]
  - Pain [None]
